FAERS Safety Report 9140503 (Version 1)
Quarter: 2013Q1

REPORT INFORMATION
  Report Type: Spontaneous
  Country: US (occurrence: US)
  Receive Date: 20130305
  Receipt Date: 20130305
  Transmission Date: 20140127
  Serious: Yes (Other)
  Sender: FDA-Public Use
  Company Number: US-PFIZER INC-2013070450

PATIENT
  Age: 83 Year
  Sex: Male

DRUGS (4)
  1. ROBITUSSIN DM [Suspect]
     Indication: NASOPHARYNGITIS
     Dosage: UNK
  2. ROBITUSSIN DM [Suspect]
     Indication: COUGH
  3. CORICIDIN HBP [Suspect]
     Indication: NASOPHARYNGITIS
     Dosage: UNK
  4. CORICIDIN HBP [Suspect]
     Indication: COUGH

REACTIONS (3)
  - Coeliac disease [Unknown]
  - Dysuria [Unknown]
  - Anaemia [Unknown]
